FAERS Safety Report 4401201-9 (Version None)
Quarter: 2004Q3

REPORT INFORMATION
  Report Type: 
  Country: None (occurrence: None)
  Receive Date: 20040907
  Receipt Date: 20031216
  Transmission Date: 20050211
  Serious: No
  Sender: FDA-Public Use
  Company Number: US-BRISTOL-MYERS SQUIBB COMPANY-12459145

PATIENT
  Age: 66 Year
  Sex: Male
  Weight: 127 kg

DRUGS (13)
  1. COUMADIN [Suspect]
     Indication: AORTIC VALVE REPLACEMENT
     Dosage: 2.5 ALT. WITH 3.5 DAILY
     Route: 048
     Dates: start: 20010701
  2. LOVENOX [Concomitant]
     Dosage: BY INJECTION
  3. PLAVIX [Concomitant]
  4. TOPROL-XL [Concomitant]
  5. ZOCOR [Concomitant]
  6. FOLIC ACID [Concomitant]
  7. POTASSIUM CHLORIDE [Concomitant]
  8. FUROSEMIDE [Concomitant]
  9. ASPIRIN [Concomitant]
  10. OMEGA 3 FISH OIL [Concomitant]
  11. VITAMIN B COMPLEX CAP [Concomitant]
  12. VITAMIN C [Concomitant]
  13. SAW PALMETTO [Concomitant]

REACTIONS (1)
  - INTERNATIONAL NORMALISED RATIO DECREASED [None]
